FAERS Safety Report 8920716 (Version 1)
Quarter: 2012Q4

REPORT INFORMATION
  Report Type: 
  Country: US (occurrence: US)
  Receive Date: 20121122
  Receipt Date: 20121122
  Transmission Date: 20130627
  Serious: No
  Sender: FDA-Public Use
  Company Number: US-009507513-1211USA008401

PATIENT
  Sex: Female

DRUGS (2)
  1. NEXPLANON [Suspect]
     Indication: CONTRACEPTION
     Dosage: 68 mg, 1 rod
     Dates: start: 20121119, end: 20121119
  2. NEXPLANON [Suspect]
     Dosage: UNK

REACTIONS (2)
  - Complication of device insertion [Unknown]
  - Product quality issue [Unknown]
